FAERS Safety Report 4895661-7 (Version None)
Quarter: 2006Q1

REPORT INFORMATION
  Report Type: 
  Country: None (occurrence: None)
  Receive Date: 20060125
  Receipt Date: 20060112
  Transmission Date: 20060701
  Serious: Yes (Hospitalization)
  Sender: FDA-Public Use
  Company Number: US-2005-027153

PATIENT
  Age: 35 Year
  Sex: Male
  Weight: 63 kg

DRUGS (11)
  1. BETASERON [Suspect]
     Indication: RELAPSING-REMITTING MULTIPLE SCLEROSIS
     Dosage: 8 MIU, EVERY 2D, SUBCUTANEOUS
     Route: 058
     Dates: start: 19960910, end: 20051217
  2. BETASERON [Suspect]
     Indication: RELAPSING-REMITTING MULTIPLE SCLEROSIS
     Dosage: 8 MIU, EVERY 2D, SUBCUTANEOUS
     Route: 058
     Dates: start: 20051220
  3. AMANTADINE HCL [Concomitant]
  4. BACLOFEN [Concomitant]
  5. BETHANECHOL (BETHANECHOL) [Concomitant]
  6. CARDURA /IRE/ (DOXAZOSIN MESILATE) [Concomitant]
  7. ATIVAN [Concomitant]
  8. ZANAFLEX [Concomitant]
  9. CITRUCEL (METHYLCELLULOSE) [Concomitant]
  10. LOVENOX [Concomitant]
  11. CHOLESTYRAMINE RESIN (COLESTYRAMINE) [Concomitant]

REACTIONS (5)
  - CLOSTRIDIAL INFECTION [None]
  - DRUG DOSE OMISSION [None]
  - INJECTION SITE CELLULITIS [None]
  - INJECTION SITE PAIN [None]
  - PYREXIA [None]
